FAERS Safety Report 8226269-3 (Version None)
Quarter: 2012Q1

REPORT INFORMATION
  Report Type: 
  Country: None (occurrence: None)
  Receive Date: 20120321
  Receipt Date: 20120319
  Transmission Date: 20120608
  Serious: Yes (Death)
  Sender: FDA-Public Use
  Company Number: PHEH2012US005581

PATIENT
  Sex: Female

DRUGS (1)
  1. GILENYA [Suspect]
     Indication: MULTIPLE SCLEROSIS
     Dosage: 0.5 MG, QD
     Route: 048
     Dates: start: 20110308, end: 20120112

REACTIONS (5)
  - DEHYDRATION [None]
  - NERVOUS SYSTEM DISORDER [None]
  - MENTAL STATUS CHANGES [None]
  - PROGRESSIVE MULTIPLE SCLEROSIS [None]
  - CONFUSIONAL STATE [None]
